FAERS Safety Report 5131671-2 (Version None)
Quarter: 2006Q4

REPORT INFORMATION
  Report Type: 
  Country: None (occurrence: None)
  Receive Date: 20061020
  Receipt Date: 20061015
  Transmission Date: 20070319
  Serious: Yes (Hospitalization)
  Sender: FDA-Public Use
  Company Number: DE-ABBOTT-06P-062-0347150-00

PATIENT
  Sex: Male
  Weight: 75 kg

DRUGS (2)
  1. KLACID FILMTABLETTEN [Suspect]
     Indication: DRUG USE FOR UNKNOWN INDICATION
     Dosage: 12 X 250 MG TABLETS
     Route: 048
     Dates: start: 20061015, end: 20061015
  2. VERAPAMIL [Suspect]
     Indication: DRUG USE FOR UNKNOWN INDICATION
     Dosage: 30 X 40MG TABLETS
     Route: 048
     Dates: start: 20061015, end: 20061015

REACTIONS (2)
  - INTENTIONAL OVERDOSE [None]
  - SUICIDE ATTEMPT [None]
